FAERS Safety Report 5476996-6 (Version None)
Quarter: 2007Q4

REPORT INFORMATION
  Report Type: 
  Country: None (occurrence: None)
  Receive Date: 20071003
  Receipt Date: 20071003
  Transmission Date: 20080405
  Serious: No
  Sender: FDA-Public Use
  Company Number: None

PATIENT
  Age: 27 Year
  Sex: Female
  Weight: 63.5036 kg

DRUGS (2)
  1. LEVAQUIN [Suspect]
     Indication: COUGH
     Dosage: 500MG  1 TIME A DAY  PO
     Route: 048
     Dates: start: 20070928, end: 20070928
  2. LEVAQUIN [Suspect]
     Indication: PYREXIA
     Dosage: 500MG  1 TIME A DAY  PO
     Route: 048
     Dates: start: 20070928, end: 20070928

REACTIONS (8)
  - ACTIVITIES OF DAILY LIVING IMPAIRED [None]
  - ASTHENIA [None]
  - CONFUSIONAL STATE [None]
  - DISORIENTATION [None]
  - DYSPNOEA [None]
  - EAR PRURITUS [None]
  - HEADACHE [None]
  - HYPOAESTHESIA [None]
